FAERS Safety Report 17238056 (Version 1)
Quarter: 2020Q1

REPORT INFORMATION
  Report Type: Spontaneous
  Country: US (occurrence: US)
  Receive Date: 20200106
  Receipt Date: 20200106
  Transmission Date: 20200409
  Serious: Yes (Life-Threatening, Other)
  Sender: FDA-Public Use
  Company Number: US-PACIRA-201900144

PATIENT
  Age: 45 Year
  Sex: Male

DRUGS (1)
  1. EXPAREL [Suspect]
     Active Substance: BUPIVACAINE
     Indication: PAIN
     Route: 008

REACTIONS (2)
  - Sinus arrest [Recovered/Resolved]
  - Atrioventricular block complete [Recovered/Resolved]
